FAERS Safety Report 5780744-X (Version None)
Quarter: 2008Q2

REPORT INFORMATION
  Report Type: 
  Country: None (occurrence: None)
  Receive Date: 20080620
  Receipt Date: 20080529
  Transmission Date: 20081010
  Serious: No
  Sender: FDA-Public Use
  Company Number: US-BAYER-200824692NA

PATIENT
  Age: 38 Year
  Sex: Female
  Weight: 95 kg

DRUGS (1)
  1. YAZ [Suspect]
     Indication: CONTRACEPTION
     Route: 048
     Dates: start: 20071101, end: 20080401

REACTIONS (7)
  - ABDOMINAL DISTENSION [None]
  - BREAST TENDERNESS [None]
  - FATIGUE [None]
  - HOT FLUSH [None]
  - LIBIDO DECREASED [None]
  - WEIGHT INCREASED [None]
  - WITHDRAWAL BLEEDING IRREGULAR [None]
